FAERS Safety Report 4498572-4 (Version None)
Quarter: 2004Q4

REPORT INFORMATION
  Report Type: 
  Country: None (occurrence: None)
  Receive Date: 20041108
  Receipt Date: 20041028
  Transmission Date: 20050328
  Serious: Yes (Other)
  Sender: FDA-Public Use
  Company Number: 2004-10-2101

PATIENT
  Sex: Female

DRUGS (2)
  1. TEMODAR [Suspect]
     Indication: GLIOBLASTOMA MULTIFORME
     Dosage: 120 MG QD ORAL
     Route: 048
  2. RADIATION THERAPY NO DOSE FORM [Suspect]
     Indication: GLIOBLASTOMA MULTIFORME
     Dosage: X-RAY THERAPY

REACTIONS (1)
  - APLASTIC ANAEMIA [None]
